FAERS Safety Report 9393104 (Version 1)
Quarter: 2013Q3

REPORT INFORMATION
  Report Type: Spontaneous
  Country: NL (occurrence: NL)
  Receive Date: 20130710
  Receipt Date: 20130710
  Transmission Date: 20140515
  Serious: Yes (Other)
  Sender: FDA-Public Use
  Company Number: NL-PFIZER INC-2013201473

PATIENT
  Sex: Female

DRUGS (3)
  1. PANTOPRAZOLE [Suspect]
     Indication: HELICOBACTER INFECTION
     Dosage: 1 DF, 2X/DAY
     Route: 048
     Dates: start: 20130621, end: 20130624
  2. CLARITHROMYCIN [Suspect]
     Indication: HELICOBACTER INFECTION
     Dosage: 1 DF, 2X/DAY
     Route: 048
     Dates: start: 20130621, end: 20130624
  3. AMOXICILLIN [Suspect]
     Indication: HELICOBACTER INFECTION
     Dosage: 1 DF, 2X/DAY
     Route: 048
     Dates: start: 20130621, end: 20130624

REACTIONS (1)
  - Oesophageal candidiasis [Recovering/Resolving]
